FAERS Safety Report 8392791-2 (Version None)
Quarter: 2012Q1

REPORT INFORMATION
  Report Type: 
  Country: None (occurrence: None)
  Receive Date: 20120323
  Receipt Date: 20110602
  Transmission Date: 20120608
  Serious: Yes (Hospitalization, Other)
  Sender: FDA-Public Use
  Company Number: 163-21880-11031467

PATIENT
  Sex: Female
  Weight: 59.4212 kg

DRUGS (5)
  1. PROCRIT [Concomitant]
  2. VIDAZA [Concomitant]
  3. REVLIMID [Suspect]
     Indication: MYELODYSPLASTIC SYNDROME
     Dosage: 10 MG, 1 IN 1 D, PO   5 MG, 1 IN 1 D, PO
     Route: 048
     Dates: start: 20100801
  4. REVLIMID [Suspect]
     Indication: MYELODYSPLASTIC SYNDROME
     Dosage: 10 MG, 1 IN 1 D, PO   5 MG, 1 IN 1 D, PO
     Route: 048
     Dates: start: 20100501
  5. REVLIMID [Suspect]
     Indication: MYELODYSPLASTIC SYNDROME
     Dosage: 10 MG, 1 IN 1 D, PO   5 MG, 1 IN 1 D, PO
     Route: 048
     Dates: start: 20110310

REACTIONS (2)
  - DIARRHOEA [None]
  - ANAEMIA [None]
